FAERS Safety Report 22305460 (Version 2)
Quarter: 2023Q2

REPORT INFORMATION
  Report Type: Report from Study
  Country: US (occurrence: US)
  Receive Date: 20230510
  Receipt Date: 20230517
  Transmission Date: 20230722
  Serious: Yes (Hospitalization)
  Sender: FDA-Public Use
  Company Number: US-PFIZER INC-PV202300082026

PATIENT
  Age: 50 Year
  Sex: Male
  Weight: 55.9 kg

DRUGS (2)
  1. PALBOCICLIB [Suspect]
     Active Substance: PALBOCICLIB
     Indication: Pancreatic carcinoma metastatic
     Dosage: 125 MILLIGRAM, QD
     Route: 048
     Dates: start: 20230213, end: 20230323
  2. ASN-007 [Suspect]
     Active Substance: ASN-007
     Indication: Pancreatic carcinoma metastatic
     Dosage: 125 MILLIGRAM, BID-QW (TABLET)
     Route: 048
     Dates: start: 20230213, end: 20230321

REACTIONS (1)
  - Pulmonary embolism [Recovering/Resolving]

NARRATIVE: CASE EVENT DATE: 20230426
